FAERS Safety Report 9663831 (Version 1)
Quarter: 2013Q4

REPORT INFORMATION
  Report Type: Spontaneous
  Country: US (occurrence: None)
  Receive Date: 20131030
  Receipt Date: 20131030
  Transmission Date: 20140711
  Serious: Yes (Other)
  Sender: FDA-Public Use
  Company Number: None

PATIENT
  Sex: Female
  Weight: 61.24 kg

DRUGS (16)
  1. FOSAMAX [Suspect]
     Indication: OSTEOPOROSIS PROPHYLAXIS
     Route: 048
  2. FOSAMAX [Suspect]
     Route: 048
  3. LISINOPRIL [Concomitant]
  4. HCTZ [Concomitant]
  5. CALCIUM [Concomitant]
  6. D400 [Concomitant]
  7. VITAMIN DIOOC [Concomitant]
  8. ASPIRIN [Concomitant]
  9. MULTIVITAMIN [Concomitant]
  10. B COMPLEX [Concomitant]
  11. FISH OIL [Concomitant]
  12. FLAX SEEDS [Concomitant]
  13. LUBRICANT EYE DROPS [Concomitant]
  14. 1% HYDROCORTISONE ANTI-ITCH CREAM (EARS) [Concomitant]
  15. VAGICINE ANTI-ITCH CREAM [Concomitant]
  16. MELATONIN [Concomitant]

REACTIONS (1)
  - Tooth disorder [None]
